FAERS Safety Report 7272078-1 (Version None)
Quarter: 2011Q1

REPORT INFORMATION
  Report Type: 
  Country: None (occurrence: None)
  Receive Date: 20110203
  Receipt Date: 20110131
  Transmission Date: 20110831
  Serious: Yes (Death)
  Sender: FDA-Public Use
  Company Number: IE-NOVOPROD-322529

PATIENT
  Age: 74 Year
  Sex: Male

DRUGS (1)
  1. LEVEMIR [Suspect]
     Indication: DIABETES MELLITUS
     Dosage: SUB-CUTANEOUS
     Route: 058
     Dates: start: 20090701, end: 20091001

REACTIONS (1)
  - GASTRIC CANCER [None]
